FAERS Safety Report 7402801 (Version 6)
Quarter: 2013Q1

REPORT INFORMATION
  Report Type: Spontaneous
  Country: US (occurrence: US)
  Receive Date: 20100528
  Receipt Date: 20130128
  Transmission Date: 20140127
  Serious: Yes (Death, Other)
  Sender: FDA-Public Use
  Company Number: US-B.I. PHARMACEUTICALS,INC./RIDGEFIELD-2010-BP-05905PF

PATIENT
  Age: 73 None
  Sex: Female
  Weight: 54.4 kg

DRUGS (26)
  1. SPIRIVA HANDIHALER [Suspect]
     Indication: CHRONIC OBSTRUCTIVE PULMONARY DISEASE
     Dosage: 18 MG
     Route: 055
     Dates: start: 2004
  2. REVATIO [Suspect]
     Indication: PULMONARY ARTERIAL HYPERTENSION
     Dosage: 60 MG
     Route: 048
     Dates: start: 2006
  3. ZYRTEC [Concomitant]
     Dosage: 10 MG
     Route: 048
     Dates: start: 200611
  4. NEURONTIN [Concomitant]
     Dosage: 300 MG
     Route: 048
     Dates: start: 200611
  5. FORTEO [Concomitant]
  6. SPIRONOLACTONE [Concomitant]
     Route: 048
     Dates: start: 200709
  7. HERBAL COQ10 [Concomitant]
     Route: 048
     Dates: start: 200805
  8. ZOCOR [Concomitant]
     Route: 048
     Dates: start: 200709
  9. ALBUTEROL [Concomitant]
     Route: 055
     Dates: start: 200610
  10. ADVAIR [Concomitant]
     Route: 055
     Dates: start: 200610
  11. CITRACAL [Concomitant]
     Route: 048
     Dates: start: 200805
  12. LEVEMIR [Concomitant]
     Route: 058
     Dates: start: 200805
  13. LASIX [Concomitant]
     Route: 048
     Dates: start: 200709
  14. NEXIUM [Concomitant]
     Route: 048
     Dates: start: 200702
  15. ACTONEL [Concomitant]
     Route: 048
     Dates: start: 200610
  16. HUMALOG [Concomitant]
     Route: 058
     Dates: start: 200702
  17. ATENOLOL [Concomitant]
     Route: 048
     Dates: start: 200610
  18. INSULIN [Concomitant]
     Indication: DIABETES MELLITUS
  19. LEVOTHYROXINE [Concomitant]
  20. PAROXETINE [Concomitant]
  21. ROPINIROLE [Concomitant]
  22. PREDNISONE [Concomitant]
  23. LIPITOR [Concomitant]
  24. LETAIRIS [Concomitant]
  25. OXYGEN [Concomitant]
  26. PROAIR HFA [Concomitant]

REACTIONS (4)
  - Cardiac arrest [Fatal]
  - Pulmonary hypertension [Fatal]
  - Pulmonary hypertension [Not Recovered/Not Resolved]
  - Malaise [Unknown]
